FAERS Safety Report 5655017-6 (Version None)
Quarter: 2008Q1

REPORT INFORMATION
  Report Type: 
  Country: None (occurrence: None)
  Receive Date: 20080307
  Receipt Date: 20071023
  Transmission Date: 20080703
  Serious: No
  Sender: FDA-Public Use
  Company Number: A0689242A

PATIENT
  Age: 86 Year
  Sex: Male

DRUGS (9)
  1. REQUIP [Suspect]
     Indication: RESTLESS LEGS SYNDROME
     Dosage: 1MG TWICE PER DAY
     Route: 048
     Dates: start: 20071001
  2. ACTOS [Concomitant]
  3. GLIPIZIDE [Concomitant]
  4. CALCIUM CITRATE [Concomitant]
  5. METFORMIN HCL [Concomitant]
  6. ARICEPT [Concomitant]
  7. SINGULAIR [Concomitant]
  8. DILTIAZEM [Concomitant]
  9. AVAPRO [Concomitant]

REACTIONS (2)
  - NAUSEA [None]
  - STOMACH DISCOMFORT [None]
